FAERS Safety Report 25342221 (Version 1)
Quarter: 2025Q2

REPORT INFORMATION
  Report Type: Spontaneous
  Country: PL (occurrence: PL)
  Receive Date: 20250521
  Receipt Date: 20250521
  Transmission Date: 20250716
  Serious: Yes (Hospitalization)
  Sender: BAYER HEALTHCARE PHARMACEUTICALS INC.
  Company Number: None

PATIENT
  Age: 41 Year
  Sex: Female

DRUGS (1)
  1. GADOBUTROL [Suspect]
     Active Substance: GADOBUTROL
     Route: 042
     Dates: start: 20250224, end: 20250224

REACTIONS (3)
  - Asthenia [Unknown]
  - Hypotonia [Unknown]
  - Pruritus [Unknown]

NARRATIVE: CASE EVENT DATE: 20250224
